FAERS Safety Report 7164087-8 (Version None)
Quarter: 2010Q4

REPORT INFORMATION
  Report Type: 
  Country: None (occurrence: None)
  Receive Date: 20101203
  Receipt Date: 20101115
  Transmission Date: 20110411
  Serious: Yes (Death)
  Sender: FDA-Public Use
  Company Number: JPI-P-012961

PATIENT
  Age: 41 Year
  Sex: Female

DRUGS (11)
  1. XYREM [Suspect]
     Indication: NARCOLEPSY
     Dosage: (4.5 GM (2.25 GM, 2 IN 1 D), ORAL) (ORAL) (9 GM (4.5 GM, 2 IN 1 D), ORAL)
     Route: 048
     Dates: start: 20090101, end: 20090101
  2. XYREM [Suspect]
     Indication: NARCOLEPSY
     Dosage: (4.5 GM (2.25 GM, 2 IN 1 D), ORAL) (ORAL) (9 GM (4.5 GM, 2 IN 1 D), ORAL)
     Route: 048
     Dates: start: 20090201, end: 20090101
  3. XYREM [Suspect]
     Indication: NARCOLEPSY
     Dosage: (4.5 GM (2.25 GM, 2 IN 1 D), ORAL) (ORAL) (9 GM (4.5 GM, 2 IN 1 D), ORAL)
     Route: 048
     Dates: start: 20090101
  4. MODAFINIL [Concomitant]
  5. ESCITALOPRAM [Concomitant]
  6. LANSOPRAZOLE [Concomitant]
  7. PANTOPRAZOLE [Concomitant]
  8. FLUTICASONE PROPIONATE [Concomitant]
  9. IBUPROFEN [Concomitant]
  10. VITAMIN D [Concomitant]
  11. MULTI-VITAMIN [Concomitant]

REACTIONS (4)
  - MADAROSIS [None]
  - SUPRAVENTRICULAR TACHYCARDIA [None]
  - TACHYCARDIA [None]
  - URINE ODOUR ABNORMAL [None]
